FAERS Safety Report 20628832 (Version 1)
Quarter: 2022Q1

REPORT INFORMATION
  Report Type: Spontaneous
  Country: FR (occurrence: FR)
  Receive Date: 20220323
  Receipt Date: 20220323
  Transmission Date: 20220423
  Serious: Yes (Congenital Anomaly, Other)
  Sender: FDA-Public Use
  Company Number: FR-ABBVIE-22K-056-4321527-00

PATIENT

DRUGS (3)
  1. VALPROATE SODIUM [Suspect]
     Active Substance: VALPROATE SODIUM
     Indication: Maternal exposure timing unspecified
     Route: 064
  2. VALPROMIDE [Suspect]
     Active Substance: VALPROMIDE
     Indication: Maternal exposure timing unspecified
     Route: 064
  3. FOLIC ACID [Concomitant]
     Active Substance: FOLIC ACID
     Indication: Maternal exposure timing unspecified

REACTIONS (22)
  - Psychomotor retardation [Unknown]
  - Dysmorphism [Unknown]
  - Dysmorphism [Unknown]
  - Memory impairment [Unknown]
  - Hydrocele [Unknown]
  - Language disorder [Unknown]
  - Developmental delay [Unknown]
  - Behaviour disorder [Unknown]
  - Limb malformation [Unknown]
  - Sleep disorder [Unknown]
  - Craniosynostosis [Unknown]
  - Learning disorder [Unknown]
  - Disturbance in attention [Unknown]
  - Heart disease congenital [Unknown]
  - Foetal anticonvulsant syndrome [Unknown]
  - Inguinal hernia [Unknown]
  - Visual impairment [Unknown]
  - Ear, nose and throat disorder [Unknown]
  - Dyspepsia [Unknown]
  - Fatigue [Unknown]
  - Enuresis [Unknown]
  - Foetal exposure during pregnancy [Unknown]

NARRATIVE: CASE EVENT DATE: 20110324
